FAERS Safety Report 9584302 (Version 1)
Quarter: 2013Q4

REPORT INFORMATION
  Report Type: Spontaneous
  Country: US (occurrence: US)
  Receive Date: 20131002
  Receipt Date: 20131002
  Transmission Date: 20140711
  Serious: No
  Sender: FDA-Public Use
  Company Number: US-AMGEN-USASP2013052459

PATIENT
  Age: 23 Year
  Sex: Male
  Weight: 89.8 kg

DRUGS (4)
  1. ENBREL [Suspect]
     Indication: PRODUCT USED FOR UNKNOWN INDICATION
     Dosage: 50 MG, QWK
     Route: 058
     Dates: start: 2011
  2. ZOLOFT [Concomitant]
     Dosage: 25 MG, UNK
  3. AUGMENTIN                          /00756801/ [Concomitant]
     Dosage: 250 MG, UNK
  4. ADDERALL [Concomitant]
     Dosage: 30 MG, UNK

REACTIONS (1)
  - Sinusitis [Unknown]
